FAERS Safety Report 4592924-X (Version None)
Quarter: 2005Q1

REPORT INFORMATION
  Report Type: 
  Country: None (occurrence: None)
  Receive Date: 20050228
  Receipt Date: 20050225
  Transmission Date: 20050727
  Serious: Yes (Hospitalization)
  Sender: FDA-Public Use
  Company Number: FRPFM-E-20050014

PATIENT
  Age: 54 Year
  Sex: Female

DRUGS (2)
  1. NAVELBINE [Suspect]
     Indication: LUNG ADENOCARCINOMA
     Dosage: 34MG PER DAY
     Route: 042
     Dates: start: 20040822
  2. CISPLATIN [Suspect]
     Indication: LUNG ADENOCARCINOMA
     Dates: start: 20040822

REACTIONS (9)
  - ANOREXIA [None]
  - CLOSTRIDIUM COLITIS [None]
  - DIARRHOEA [None]
  - HYPONATRAEMIA [None]
  - KLEBSIELLA INFECTION [None]
  - LEUKOPENIA [None]
  - MALAISE [None]
  - PYREXIA [None]
  - VOMITING [None]
